FAERS Safety Report 9457493 (Version 1)
Quarter: 2013Q3

REPORT INFORMATION
  Report Type: Spontaneous
  Country: CA (occurrence: CA)
  Receive Date: 20130814
  Receipt Date: 20130814
  Transmission Date: 20140515
  Serious: Yes (Other)
  Sender: FDA-Public Use
  Company Number: CA-AMGEN-CANSP2013056653

PATIENT
  Age: 62 Year
  Sex: Female

DRUGS (5)
  1. PROLIA [Suspect]
     Indication: OSTEOPOROSIS POSTMENOPAUSAL
     Dosage: UNK
     Route: 065
     Dates: start: 201303
  2. SYNTHROID [Concomitant]
  3. PARIET [Concomitant]
  4. DIAZIDE                            /00007602/ [Concomitant]
  5. DICETEL [Concomitant]

REACTIONS (2)
  - Knee arthroplasty [Unknown]
  - Arthralgia [Unknown]
